FAERS Safety Report 4708612-2 (Version None)
Quarter: 2005Q3

REPORT INFORMATION
  Report Type: 
  Country: None (occurrence: None)
  Receive Date: 20050706
  Receipt Date: 20050621
  Transmission Date: 20060218
  Serious: Yes (Hospitalization)
  Sender: FDA-Public Use
  Company Number: 2005BI000782

PATIENT
  Age: 47 Year
  Sex: Female

DRUGS (9)
  1. AVONEX [Suspect]
     Indication: MULTIPLE SCLEROSIS
     Dosage: 30 UG; QW; IM
     Route: 030
     Dates: start: 20021130
  2. AVONEX [Suspect]
     Indication: MULTIPLE SCLEROSIS
     Dosage: IM
     Route: 030
     Dates: start: 20041027
  3. VICODIN [Concomitant]
  4. CELEBREX [Concomitant]
  5. VIOXX [Concomitant]
  6. BACLOFEN [Concomitant]
  7. ALLEGRA [Concomitant]
  8. MOBIC [Concomitant]
  9. RHINOCORT [Concomitant]

REACTIONS (8)
  - BACK PAIN [None]
  - DEPRESSION [None]
  - FALL [None]
  - FATIGUE [None]
  - GASTRITIS HAEMORRHAGIC [None]
  - HYPOTENSION [None]
  - OESOPHAGEAL ULCER [None]
  - TACHYCARDIA [None]
